FAERS Safety Report 8293261 (Version 4)
Quarter: 2012Q4

REPORT INFORMATION
  Report Type: Report from Study
  Country: DE (occurrence: DE)
  Receive Date: 20111215
  Receipt Date: 20121205
  Transmission Date: 20130627
  Serious: Yes (Hospitalization)
  Sender: FDA-Public Use
  Company Number: PHHO2011DE020573

PATIENT
  Age: 38 Year
  Sex: Female
  Weight: 62 kg

DRUGS (5)
  1. RAD001 [Suspect]
     Indication: LYMPHANGIOLEIOMYOMATOSIS
     Dosage: 10 mg, QD
     Route: 048
     Dates: start: 20111114, end: 20111116
  2. RAD001 [Suspect]
     Dosage: 10 mg, QD
     Route: 048
     Dates: start: 20111228
  3. BLINDED AFINITOR [Suspect]
     Indication: LYMPHANGIOLEIOMYOMATOSIS
     Dosage: Double blind
     Dates: start: 20101207, end: 20111117
  4. BLINDED NO TREATMENT RECEIVED [Suspect]
     Indication: LYMPHANGIOLEIOMYOMATOSIS
     Dosage: Double blind
     Dates: start: 20101207, end: 20111117
  5. BLINDED PLACEBO [Suspect]
     Indication: LYMPHANGIOLEIOMYOMATOSIS
     Dosage: Double blind
     Dates: start: 20101207, end: 20111117

REACTIONS (1)
  - Pneumonia [Recovered/Resolved]
